FAERS Safety Report 6400142-5 (Version None)
Quarter: 2009Q4

REPORT INFORMATION
  Report Type: 
  Country: None (occurrence: None)
  Receive Date: 20091014
  Receipt Date: 20091005
  Transmission Date: 20100525
  Serious: Yes (Other)
  Sender: FDA-Public Use
  Company Number: US-PFIZER INC-2009219211

PATIENT
  Sex: Female
  Weight: 62.585 kg

DRUGS (4)
  1. DILANTIN [Suspect]
     Indication: CONVULSION
     Dosage: 100 MG, 3X/DAY
     Dates: start: 19900101
  2. TEGRETOL [Concomitant]
     Dosage: UNK
  3. RISPERDAL [Concomitant]
     Dosage: 0.75 MG, UNK
  4. ATIVAN [Concomitant]
     Dosage: 0.25 MG, 2X/DAY

REACTIONS (3)
  - ANTICONVULSANT DRUG LEVEL INCREASED [None]
  - CONVULSION [None]
  - DRUG INEFFECTIVE [None]
